FAERS Safety Report 5779177-1 (Version None)
Quarter: 2008Q2

REPORT INFORMATION
  Report Type: 
  Country: None (occurrence: None)
  Receive Date: 20080619
  Receipt Date: 20080617
  Transmission Date: 20081010
  Serious: No
  Sender: FDA-Public Use
  Company Number: US-ASTRAZENECA-2008UW08312

PATIENT
  Age: 63 Year

DRUGS (2)
  1. SYMBICORT [Suspect]
     Indication: ASTHMA
     Dosage: 160/4.5 MCG
     Route: 055
  2. ANTIBIOTICS [Concomitant]
     Indication: SINUSITIS

REACTIONS (2)
  - COUGH [None]
  - DYSPNOEA [None]
